FAERS Safety Report 4386170-2 (Version None)
Quarter: 2004Q2

REPORT INFORMATION
  Report Type: 
  Country: None (occurrence: None)
  Receive Date: 20040629
  Receipt Date: 20040505
  Transmission Date: 20050107
  Serious: Yes (Hospitalization, Other)
  Sender: FDA-Public Use
  Company Number: PHRM2004FR01756

PATIENT
  Age: 50 Year
  Sex: Male
  Weight: 86 kg

DRUGS (6)
  1. FRACTAL [Suspect]
     Indication: HYPERCHOLESTEROLAEMIA
     Dosage: 20 MG, QD
     Route: 048
     Dates: start: 20040130, end: 20040216
  2. BAMBUTEROL [Concomitant]
     Dosage: 10 MG/DAY
     Route: 048
     Dates: start: 20021216
  3. BECLOMETHASONE DIPROPIONATE [Concomitant]
     Dosage: 1200 A?G/DAY
     Dates: start: 20021216
  4. AMODEX [Concomitant]
     Indication: PHARYNGOLARYNGEAL PAIN
     Dosage: 2 G/DAY
     Route: 048
     Dates: start: 20040130, end: 20040204
  5. DIMETANE [Concomitant]
     Indication: PHARYNGOLARYNGEAL PAIN
     Dosage: 1 DF, TID
     Route: 048
     Dates: start: 20040130, end: 20040204
  6. LYSOPAINE [Concomitant]
     Indication: PHARYNGOLARYNGEAL PAIN
     Route: 048
     Dates: start: 20040101

REACTIONS (13)
  - ARTHRALGIA [None]
  - BLOOD CREATINE PHOSPHOKINASE INCREASED [None]
  - FOLLICULITIS [None]
  - GAMMA-GLUTAMYLTRANSFERASE INCREASED [None]
  - HENOCH-SCHONLEIN PURPURA [None]
  - HEPATIC ENZYME INCREASED [None]
  - MYALGIA [None]
  - PARAESTHESIA [None]
  - PURPURA [None]
  - RASH PUSTULAR [None]
  - SKIN NECROSIS [None]
  - TRANSAMINASES INCREASED [None]
  - VASCULITIS [None]
